FAERS Safety Report 15552506 (Version 1)
Quarter: 2018Q4

REPORT INFORMATION
  Report Type: Spontaneous
  Country: DE (occurrence: DE)
  Receive Date: 20181025
  Receipt Date: 20181025
  Transmission Date: 20190205
  Serious: Yes (Other)
  Sender: FDA-Public Use
  Company Number: PHHY2018DE137690

PATIENT
  Sex: Female
  Weight: 2.92 kg

DRUGS (1)
  1. RITALINE [Suspect]
     Active Substance: METHYLPHENIDATE HYDROCHLORIDE
     Indication: FOETAL EXPOSURE DURING PREGNANCY
     Dosage: MATERNAL DOSE:60 TO 75 MG/DAY, ORAL
     Route: 064

REACTIONS (2)
  - Foetal exposure during pregnancy [Unknown]
  - Tachycardia foetal [Recovered/Resolved]
